FAERS Safety Report 14572544 (Version 1)
Quarter: 2018Q1

REPORT INFORMATION
  Report Type: Spontaneous
  Country: US (occurrence: US)
  Receive Date: 20180226
  Receipt Date: 20180226
  Transmission Date: 20180509
  Serious: Yes (Hospitalization, Other)
  Sender: FDA-Public Use
  Company Number: US-GLENMARK PHARMACEUTICALS-2018GMK032495

PATIENT
  Age: 11 Year
  Sex: Male

DRUGS (7)
  1. ABACAVIR. [Concomitant]
     Active Substance: ABACAVIR
     Indication: PERINATAL HIV INFECTION
     Dosage: UNK, BID
     Route: 065
  2. TRIAMCINOLONE ACETONIDE. [Suspect]
     Active Substance: TRIAMCINOLONE ACETONIDE
     Indication: ANALGESIC THERAPY
     Dosage: 40 MG, IN TOTAL
     Route: 014
  3. ATAZANAVIR. [Concomitant]
     Active Substance: ATAZANAVIR SULFATE
     Indication: PERINATAL HIV INFECTION
     Dosage: UNK
     Route: 065
  4. RITONAVIR. [Interacting]
     Active Substance: RITONAVIR
     Indication: PERINATAL HIV INFECTION
     Dosage: UNK
     Route: 065
  5. DIDANOSINE. [Concomitant]
     Active Substance: DIDANOSINE
     Indication: PERINATAL HIV INFECTION
     Dosage: UNK
     Route: 065
  6. RITONAVIR. [Concomitant]
     Active Substance: RITONAVIR
     Indication: PERINATAL HIV INFECTION
     Dosage: UNK
     Route: 065
  7. EPZICOM [Concomitant]
     Active Substance: ABACAVIR SULFATE\LAMIVUDINE
     Indication: PERINATAL HIV INFECTION
     Dosage: UNK, QD
     Route: 065

REACTIONS (2)
  - Pituitary-dependent Cushing^s syndrome [Recovering/Resolving]
  - Drug interaction [Recovering/Resolving]
